FAERS Safety Report 17150158 (Version 2)
Quarter: 2019Q4

REPORT INFORMATION
  Report Type: Spontaneous
  Country: PL (occurrence: PL)
  Receive Date: 20191213
  Receipt Date: 20191217
  Transmission Date: 20200122
  Serious: Yes (Other)
  Sender: FDA-Public Use
  Company Number: PL-MYLANLABS-2019M1122362

PATIENT
  Age: 65 Year
  Sex: Male

DRUGS (11)
  1. FENTANYL. [Suspect]
     Active Substance: FENTANYL
     Dosage: 4 DOSAGE FORM, QD, (4 DF, PER DAY)
  2. BUPRENORPHINE. [Suspect]
     Active Substance: BUPRENORPHINE
     Dosage: 52.5 DOSAGE FORM, 52.5 UG/HR
     Route: 062
  3. PREGABALIN. [Suspect]
     Active Substance: PREGABALIN
     Indication: PRODUCT USED FOR UNKNOWN INDICATION
     Dosage: 150 MILLIGRAM, QD
     Route: 065
  4. PREGABALIN. [Suspect]
     Active Substance: PREGABALIN
     Dosage: 75 MILLIGRAM, BID
     Route: 065
  5. FENTANYL. [Suspect]
     Active Substance: FENTANYL
     Indication: PROPHYLAXIS
     Dosage: UNK UNK, QD
  6. BUPRENORPHINE. [Suspect]
     Active Substance: BUPRENORPHINE
     Dosage: 35 DOSAGE FORM, 35 UG/HR
     Route: 062
  7. BUPRENORPHINE. [Suspect]
     Active Substance: BUPRENORPHINE
     Indication: PRODUCT USED FOR UNKNOWN INDICATION
     Dosage: 70 DOSAGE FORM, 70 UG/HR
     Route: 062
  8. OXYCODONE HYDROCHLORIDE. [Suspect]
     Active Substance: OXYCODONE HYDROCHLORIDE
     Indication: PRODUCT USED FOR UNKNOWN INDICATION
     Dosage: 80 MILLIGRAM, QD
  9. PREGABALIN. [Suspect]
     Active Substance: PREGABALIN
     Dosage: 300 MILLIGRAM, QD
     Route: 065
  10. DULOXETINE. [Suspect]
     Active Substance: DULOXETINE
     Indication: PRODUCT USED FOR UNKNOWN INDICATION
     Dosage: 60-120 MG DAILY
  11. PARACETAMOL [Suspect]
     Active Substance: ACETAMINOPHEN
     Indication: PRODUCT USED FOR UNKNOWN INDICATION
     Dosage: 4 GRAM, QD

REACTIONS (7)
  - Pain [Recovered/Resolved]
  - Apathy [Recovered/Resolved]
  - Neuralgia [Recovered/Resolved]
  - Somnolence [Recovered/Resolved]
  - Suicidal ideation [Recovered/Resolved]
  - Neoplasm progression [Unknown]
  - Drug ineffective [Recovered/Resolved]
